FAERS Safety Report 9369645 (Version 1)
Quarter: 2013Q2

REPORT INFORMATION
  Report Type: Spontaneous
  Country: CA (occurrence: CA)
  Receive Date: 20130626
  Receipt Date: 20130626
  Transmission Date: 20140414
  Serious: Yes (Hospitalization, Other)
  Sender: FDA-Public Use
  Company Number: CA-VERTEX PHARMACEUTICALS INC-2013-007448

PATIENT
  Age: 57 Year
  Sex: Female

DRUGS (6)
  1. INCIVEK [Suspect]
     Indication: HEPATITIS C
     Dosage: 750 MG, TID
     Route: 048
  2. PEGASYS [Suspect]
     Indication: HEPATITIS C
     Dosage: 180 ?G
     Route: 058
     Dates: start: 20130325
  3. RIBAVIRIN [Suspect]
     Indication: HEPATITIS C
     Route: 048
  4. BLOOD PRESSURE MEDICATION [Concomitant]
  5. THYROID MEDICATION [Concomitant]
  6. PANTOPRAZOLE [Concomitant]

REACTIONS (4)
  - Gastrointestinal haemorrhage [Unknown]
  - Haemoptysis [Unknown]
  - Haemoglobin decreased [Unknown]
  - Platelet count decreased [Unknown]
